FAERS Safety Report 8430411-9 (Version None)
Quarter: 2012Q2

REPORT INFORMATION
  Report Type: 
  Country: None (occurrence: None)
  Receive Date: 20120612
  Receipt Date: 20120606
  Transmission Date: 20120825
  Serious: No
  Sender: FDA-Public Use
  Company Number: US-PFIZER INC-2012136506

PATIENT
  Sex: Male
  Weight: 86 kg

DRUGS (3)
  1. ATORVASTATIN CALCIUM [Suspect]
     Dosage: UNK
     Route: 048
  2. ATORVASTATIN CALCIUM [Suspect]
     Indication: BLOOD CHOLESTEROL INCREASED
     Dosage: UNK, 1X/DAY
     Route: 048
     Dates: start: 20120101
  3. LIPITOR [Suspect]
     Indication: BLOOD CHOLESTEROL INCREASED
     Dosage: 40 MG, 1X/DAY
     Route: 048
     Dates: end: 20120101

REACTIONS (1)
  - MUSCULOSKELETAL PAIN [None]
